FAERS Safety Report 9470308 (Version 1)
Quarter: 2013Q3

REPORT INFORMATION
  Report Type: Spontaneous
  Country: US (occurrence: US)
  Receive Date: 20130822
  Receipt Date: 20130822
  Transmission Date: 20140515
  Serious: No
  Sender: FDA-Public Use
  Company Number: US-SANOFI-AVENTIS-2012SA070082

PATIENT
  Age: 86 Year
  Sex: Male

DRUGS (3)
  1. MULTAQ [Suspect]
     Indication: SUPRAVENTRICULAR TACHYCARDIA
     Route: 048
     Dates: start: 20120911
  2. WARFARIN [Concomitant]
     Dosage: ADJUSTING HIS WARFARIN FROM 10 MG TO 8 MG TO 7 MG TO 6 MG
  3. METOPROLOL [Concomitant]

REACTIONS (1)
  - International normalised ratio increased [Unknown]
